FAERS Safety Report 15967934 (Version 1)
Quarter: 2019Q1

REPORT INFORMATION
  Report Type: Spontaneous
  Country: US (occurrence: US)
  Receive Date: 20190215
  Receipt Date: 20190215
  Transmission Date: 20190418
  Serious: Yes (Other)
  Sender: FDA-Public Use
  Company Number: None

PATIENT
  Age: 9 Year
  Sex: Male
  Weight: 24.75 kg

DRUGS (2)
  1. CLOBAZAM GENERIC [Suspect]
     Active Substance: CLOBAZAM
     Indication: LENNOX-GASTAUT SYNDROME
     Dosage: ?          QUANTITY:4 ML;?
     Route: 048
     Dates: start: 20181120, end: 20190102
  2. CLOBAZAM GENERIC [Suspect]
     Active Substance: CLOBAZAM
     Indication: SEIZURE
     Dosage: ?          QUANTITY:4 ML;?
     Route: 048
     Dates: start: 20181120, end: 20190102

REACTIONS (3)
  - Insurance issue [None]
  - Epilepsy [None]
  - Product substitution issue [None]

NARRATIVE: CASE EVENT DATE: 20181130
